FAERS Safety Report 4448310-6 (Version None)
Quarter: 2004Q3

REPORT INFORMATION
  Report Type: 
  Country: None (occurrence: None)
  Receive Date: 20040913
  Receipt Date: 20040825
  Transmission Date: 20050211
  Serious: Yes (Other)
  Sender: FDA-Public Use
  Company Number: 2004229689JP

PATIENT
  Age: 76 Year
  Sex: Male

DRUGS (6)
  1. SOLU-MEDROL [Suspect]
     Dosage: 1000 MG, QD; UNK
     Route: 065
     Dates: start: 20040426, end: 20040427
  2. TEGRETOL [Concomitant]
  3. METHYCOBAL (MECOBALAMIN) [Concomitant]
  4. HARNAL (TAMSULOSIN HYDROCHLORIDE) [Concomitant]
  5. OMEPRAL [Concomitant]
  6. PROMAC (POLAPREZINC) [Concomitant]

REACTIONS (2)
  - CONDITION AGGRAVATED [None]
  - SPASTIC PARAPLEGIA [None]
